FAERS Safety Report 4433468-5 (Version None)
Quarter: 2004Q3

REPORT INFORMATION
  Report Type: 
  Country: None (occurrence: None)
  Receive Date: 20040824
  Receipt Date: 20040811
  Transmission Date: 20050211
  Serious: Yes (Hospitalization)
  Sender: FDA-Public Use
  Company Number: 2004-03596

PATIENT
  Age: 60 Year
  Sex: Female

DRUGS (4)
  1. FLUOROURACIL [Suspect]
     Indication: BREAST CANCER
     Dosage: 600 MG/M2 ON DAYS 1-8 1-8 Q4WEEKS, INTRAVENOUS
     Route: 042
     Dates: start: 19990121, end: 19990301
  2. WARFARIN SODIUM [Suspect]
     Indication: ATRIAL FIBRILLATION
     Dosage: 2.5 TO 5 MG, DAILY, ORAL
     Route: 048
     Dates: start: 19980813
  3. CYCLOPHOSPHAMIDE [Concomitant]
  4. METHOTREXATE [Concomitant]

REACTIONS (2)
  - DRUG INTERACTION INHIBITION [None]
  - SUBDURAL HAEMATOMA [None]
